FAERS Safety Report 13539048 (Version 2)
Quarter: 2017Q2

REPORT INFORMATION
  Report Type: Report from Study
  Country: JP (occurrence: JP)
  Receive Date: 20170512
  Receipt Date: 20170612
  Transmission Date: 20170830
  Serious: Yes (Hospitalization)
  Sender: FDA-Public Use
  Company Number: PHJP2017JP015589

PATIENT
  Age: 67 Year
  Sex: Male
  Weight: 57.1 kg

DRUGS (21)
  1. CERTICAN [Suspect]
     Active Substance: EVEROLIMUS
     Dosage: 1.75 MG, QD
     Route: 048
     Dates: start: 20160120
  2. NEORAL [Concomitant]
     Active Substance: CYCLOSPORINE
     Dosage: 70 MG, UNK
     Route: 048
     Dates: start: 20160826, end: 20170119
  3. MDS [Concomitant]
     Indication: HYPERLIPIDAEMIA
     Dosage: 900 MG, UNK
     Route: 048
     Dates: start: 20110516
  4. MDS [Concomitant]
     Dosage: 900 MG, UNK
     Route: 048
  5. BUFFERIN [Concomitant]
     Active Substance: ASPIRIN
     Indication: THROMBOSIS PROPHYLAXIS
     Dosage: 81 MG, UNK
     Route: 048
     Dates: start: 20110516
  6. CERTICAN [Suspect]
     Active Substance: EVEROLIMUS
     Dosage: 1.25 MG, QD
     Route: 048
     Dates: start: 20151007, end: 20151208
  7. PREDONINE [Concomitant]
     Active Substance: PREDNISOLONE
     Indication: PRODUCT USED FOR UNKNOWN INDICATION
     Dosage: 5 MG, UNK
     Route: 048
     Dates: start: 20110516
  8. CERTICAN [Suspect]
     Active Substance: EVEROLIMUS
     Dosage: 1.5 MG, QD
     Route: 048
     Dates: start: 20151209, end: 20160119
  9. NEORAL [Concomitant]
     Active Substance: CYCLOSPORINE
     Dosage: 175 MG, UNK
     Route: 048
     Dates: start: 20110517, end: 20110530
  10. NEORAL [Concomitant]
     Active Substance: CYCLOSPORINE
     Dosage: 60 MG, UNK
     Route: 048
     Dates: start: 20170120
  11. MYCOPHENOLATE MOFETIL. [Concomitant]
     Active Substance: MYCOPHENOLATE MOFETIL
     Indication: PRODUCT USED FOR UNKNOWN INDICATION
     Dosage: 2000 MG, UNK
     Route: 048
     Dates: start: 20110516
  12. NEORAL [Concomitant]
     Active Substance: CYCLOSPORINE
     Indication: PRODUCT USED FOR UNKNOWN INDICATION
     Dosage: 225 MG, UNK
     Route: 048
     Dates: start: 20110411, end: 20110516
  13. CERTICAN [Suspect]
     Active Substance: EVEROLIMUS
     Indication: HEART TRANSPLANT
     Dosage: 1 MG, QD
     Route: 048
     Dates: start: 20110516, end: 20151006
  14. NEORAL [Concomitant]
     Active Substance: CYCLOSPORINE
     Dosage: 150 MG, UNK
     Route: 048
     Dates: start: 20110531
  15. NEORAL [Concomitant]
     Active Substance: CYCLOSPORINE
     Dosage: 80 MG, UNK
     Route: 048
     Dates: start: 20160225, end: 20160825
  16. RENIVACE [Concomitant]
     Active Substance: ENALAPRIL
     Indication: HYPERTENSION
     Dosage: 10 MG, UNK
     Route: 048
     Dates: start: 20110516
  17. ZYLORIC [Concomitant]
     Active Substance: ALLOPURINOL
     Indication: HYPERURICAEMIA
     Dosage: 150 MG, UNK
     Route: 048
     Dates: start: 20110516
  18. URALYT [Concomitant]
     Active Substance: POTASSIUM CITRATE\TRISODIUM CITRATE DIHYDRATE
     Indication: HYPERURICAEMIA
     Dosage: 3 DF, UNK
     Route: 048
     Dates: start: 20110516
  19. ADALAT [Concomitant]
     Active Substance: NIFEDIPINE
     Indication: HYPERTENSION
     Dosage: 40 MG, UNK
     Route: 048
     Dates: start: 20110516
  20. MEVALOTIN [Concomitant]
     Active Substance: PRAVASTATIN SODIUM
     Indication: HYPERLIPIDAEMIA
     Dosage: 5 MG, UNK
     Route: 048
     Dates: start: 20110516
  21. MEVALOTIN [Concomitant]
     Active Substance: PRAVASTATIN SODIUM
     Dosage: 10 MG, UNK
     Route: 048

REACTIONS (3)
  - Enteritis infectious [Recovered/Resolved]
  - Diarrhoea [Unknown]
  - Vomiting [Unknown]

NARRATIVE: CASE EVENT DATE: 20160708
